FAERS Safety Report 18043181 (Version 1)
Quarter: 2020Q3

REPORT INFORMATION
  Report Type: Spontaneous
  Country: US (occurrence: US)
  Receive Date: 20200717
  Receipt Date: 20200717
  Transmission Date: 20201103
  Serious: Yes (Other)
  Sender: FDA-Public Use
  Company Number: None

PATIENT
  Age: 29 Year
  Sex: Female

DRUGS (2)
  1. EMGALITY [Suspect]
     Active Substance: GALCANEZUMAB-GNLM
  2. EMGALITY [Concomitant]
     Active Substance: GALCANEZUMAB-GNLM
     Dates: start: 20200420, end: 20200627

REACTIONS (6)
  - Cognitive disorder [None]
  - Feeling abnormal [None]
  - Therapy cessation [None]
  - Speech disorder [None]
  - Feeding disorder [None]
  - Insomnia [None]

NARRATIVE: CASE EVENT DATE: 20200627
